FAERS Safety Report 4452069-6 (Version None)
Quarter: 2004Q3

REPORT INFORMATION
  Report Type: 
  Country: None (occurrence: None)
  Receive Date: 20040915
  Receipt Date: 20040915
  Transmission Date: 20050211
  Serious: Yes (Other)
  Sender: FDA-Public Use
  Company Number: None

PATIENT
  Age: 71 Year
  Sex: Female
  Weight: 79.3795 kg

DRUGS (3)
  1. LEVAQUIN [Suspect]
     Indication: BRONCHOPNEUMONIA
     Dosage: ORAL 047 ONE TABLET PER DAY
     Route: 048
     Dates: start: 20020205, end: 20040707
  2. VI-Q-TUSS [Concomitant]
  3. ADVAIR INH [Concomitant]

REACTIONS (2)
  - DIARRHOEA [None]
  - NAUSEA [None]
